FAERS Safety Report 25211334 (Version 1)
Quarter: 2025Q2

REPORT INFORMATION
  Report Type: Spontaneous
  Country: US (occurrence: US)
  Receive Date: 20250417
  Receipt Date: 20250417
  Transmission Date: 20250716
  Serious: No
  Sender: BRISTOL-MYERS SQUIBB COMPANY
  Company Number: US-BRISTOL-MYERS SQUIBB COMPANY-2025-056624

PATIENT
  Age: 63 Year
  Sex: Female

DRUGS (2)
  1. ORENCIA [Suspect]
     Active Substance: ABATACEPT
     Indication: Rheumatoid arthritis
     Route: 058
     Dates: start: 202504
  2. INSULIN NOS [Concomitant]
     Active Substance: INSULIN NOS
     Indication: Diabetes mellitus

REACTIONS (8)
  - Facial pain [Unknown]
  - Flushing [Unknown]
  - Swelling face [Unknown]
  - Swelling [Unknown]
  - Tenderness [Unknown]
  - Pituitary enlargement [Unknown]
  - Skin burning sensation [Unknown]
  - Ear swelling [Unknown]

NARRATIVE: CASE EVENT DATE: 20250401
